FAERS Safety Report 8859339 (Version 1)
Quarter: 2012Q4

REPORT INFORMATION
  Report Type: 
  Country: US (occurrence: US)
  Receive Date: 20121024
  Receipt Date: 20121024
  Transmission Date: 20130627
  Serious: No
  Sender: FDA-Public Use
  Company Number: US-ASTRAZENECA-2012SE14072

PATIENT
  Age: 57 Year
  Sex: Male

DRUGS (10)
  1. TOPROL XL [Suspect]
     Route: 048
     Dates: start: 20110706
  2. ZESTORETIC [Suspect]
     Dosage: 20-12.5 MG, 0.5 TABLET DAILY FOR 90 DAYS
     Route: 048
     Dates: start: 20110706
  3. FLONASE NASAL SPRAY [Concomitant]
  4. JALYN [Concomitant]
  5. METROGEL TOPICAL GEL [Concomitant]
  6. PREDNISONE [Concomitant]
  7. TIMOPTIC [Concomitant]
  8. TRICOR [Concomitant]
  9. VALIUM [Concomitant]
  10. XALATAN [Concomitant]

REACTIONS (1)
  - Back pain [Unknown]
